FAERS Safety Report 10391540 (Version 1)
Quarter: 2014Q3

REPORT INFORMATION
  Report Type: Spontaneous
  Country: DK (occurrence: GB)
  Receive Date: 20140818
  Receipt Date: 20140818
  Transmission Date: 20150326
  Serious: Yes (Hospitalization, Disabling, Other)
  Sender: FDA-Public Use
  Company Number: GB-FRI-1000069918

PATIENT
  Age: 41 Year
  Sex: Female
  Weight: 76.2 kg

DRUGS (8)
  1. QUETIAPINE [Suspect]
     Active Substance: QUETIAPINE
     Indication: MENTAL DISORDER
     Dosage: 800 MG DAILY
     Route: 048
     Dates: start: 20120104, end: 20120106
  2. PSYCHIATRIC DRUGS NOS [Suspect]
     Active Substance: UNSPECIFIED INGREDIENT
     Indication: MENTAL DISORDER
     Route: 051
     Dates: start: 20120915, end: 20121027
  3. QUETIAPINE [Suspect]
     Active Substance: QUETIAPINE
     Route: 048
     Dates: start: 20120107
  4. MIRTAZAPINE. [Concomitant]
     Active Substance: MIRTAZAPINE
  5. DULOXETINE [Suspect]
     Active Substance: DULOXETINE
     Indication: MENTAL DISORDER
     Dosage: 60 MG DAILY
     Route: 048
     Dates: start: 20120105, end: 20120106
  6. MIDAZOLAM [Suspect]
     Active Substance: MIDAZOLAM\MIDAZOLAM HYDROCHLORIDE
     Indication: MENTAL DISORDER
     Dosage: 50 MG
     Route: 048
     Dates: start: 20120103, end: 20120106
  7. CITALOPRAM [Suspect]
     Active Substance: CITALOPRAM HYDROBROMIDE
     Route: 048
     Dates: start: 20120314
  8. CITALOPRAM [Suspect]
     Active Substance: CITALOPRAM HYDROBROMIDE
     Indication: MENTAL DISORDER
     Dosage: OVERDOSE: 50 MG DAILY
     Route: 048
     Dates: start: 20120109, end: 20120313

REACTIONS (5)
  - Off label use [Unknown]
  - Neuropathy peripheral [Not Recovered/Not Resolved]
  - Documented hypersensitivity to administered drug [Unknown]
  - Medication error [Unknown]
  - Prescribed overdose [Unknown]

NARRATIVE: CASE EVENT DATE: 2012
